FAERS Safety Report 5474239-0 (Version None)
Quarter: 2007Q4

REPORT INFORMATION
  Report Type: 
  Country: None (occurrence: None)
  Receive Date: 20071002
  Receipt Date: 20070605
  Transmission Date: 20080405
  Serious: No
  Sender: FDA-Public Use
  Company Number: US-ASTRAZENECA-2007UW13527

PATIENT
  Age: 60 Year
  Sex: Female
  Weight: 58.1 kg

DRUGS (4)
  1. ARIMIDEX [Suspect]
     Indication: BREAST CANCER
     Route: 048
     Dates: start: 20060301
  2. BENAZEPRIL HYDROCHLORIDE [Concomitant]
  3. ASCORBIC ACID [Concomitant]
  4. VITAMIN CAP [Concomitant]

REACTIONS (3)
  - ARTHRALGIA [None]
  - HYPERTENSION [None]
  - TRIGGER FINGER [None]
